FAERS Safety Report 7099930-4 (Version None)
Quarter: 2010Q4

REPORT INFORMATION
  Report Type: 
  Country: None (occurrence: None)
  Receive Date: 20101112
  Receipt Date: 20101101
  Transmission Date: 20110411
  Serious: Yes (Other)
  Sender: FDA-Public Use
  Company Number: US-JNJFOC-20100704635

PATIENT
  Sex: Female

DRUGS (3)
  1. LEVAQUIN [Suspect]
     Indication: VULVAL CELLULITIS
     Route: 048
  2. LEVAQUIN [Suspect]
     Indication: DIVERTICULITIS
     Route: 048
  3. METHYLPREDNISOLONE [Suspect]
     Indication: ILL-DEFINED DISORDER
     Route: 065

REACTIONS (3)
  - ENTHESOPATHY [None]
  - EXOSTOSIS [None]
  - TENDONITIS [None]
